FAERS Safety Report 22254276 (Version 1)
Quarter: 2023Q2

REPORT INFORMATION
  Report Type: Spontaneous
  Country: ES (occurrence: ES)
  Receive Date: 20230426
  Receipt Date: 20230426
  Transmission Date: 20230722
  Serious: Yes (Hospitalization, Other)
  Sender: FDA-Public Use
  Company Number: ES-BAYER-2023A057193

PATIENT
  Age: 81 Year
  Sex: Male

DRUGS (1)
  1. EYLEA [Suspect]
     Active Substance: AFLIBERCEPT
     Indication: Product used for unknown indication
     Dosage: UNK (STRENGTH: 40 MG/ML, FORMULATION: SOLUTION FOR INJECTION)
     Route: 031

REACTIONS (3)
  - Photophobia [Recovered/Resolved]
  - Scleritis [Recovered/Resolved]
  - Eye pain [Recovered/Resolved]
